FAERS Safety Report 15660801 (Version 1)
Quarter: 2018Q4

REPORT INFORMATION
  Report Type: Report from Study
  Country: PT (occurrence: PT)
  Receive Date: 20181127
  Receipt Date: 20181127
  Transmission Date: 20190205
  Serious: Yes (Other)
  Sender: FDA-Public Use
  Company Number: PT-TEVA-2018-PT-980123

PATIENT
  Age: 30 Year
  Sex: Male

DRUGS (9)
  1. DIDANOSINE. [Suspect]
     Active Substance: DIDANOSINE
     Indication: HIV INFECTION CDC CATEGORY C
     Route: 048
  2. ALPRAZOLAM. [Suspect]
     Active Substance: ALPRAZOLAM
     Route: 048
  3. FLURAZEPAM [Suspect]
     Active Substance: FLURAZEPAM\FLURAZEPAM HYDROCHLORIDE
     Route: 048
  4. AMPHOTERICIN B. [Suspect]
     Active Substance: AMPHOTERICIN B
     Route: 048
  5. TRAMADOL. [Suspect]
     Active Substance: TRAMADOL
     Route: 048
  6. LOPINAVIR/RITONAVIR [Suspect]
     Active Substance: LOPINAVIR\RITONAVIR
     Indication: HIV INFECTION CDC CATEGORY C
     Route: 048
  7. BUPRENORPHINE. [Suspect]
     Active Substance: BUPRENORPHINE
     Route: 048
  8. ZIDOVUDINE. [Suspect]
     Active Substance: ZIDOVUDINE
     Indication: HIV INFECTION CDC CATEGORY C
     Route: 048
  9. OXAZEPAM. [Suspect]
     Active Substance: OXAZEPAM
     Route: 048

REACTIONS (1)
  - Drug-induced liver injury [Recovered/Resolved]
